FAERS Safety Report 6114907-0 (Version None)
Quarter: 2009Q1

REPORT INFORMATION
  Report Type: 
  Country: None (occurrence: None)
  Receive Date: 20090313
  Receipt Date: 20090304
  Transmission Date: 20090719
  Serious: Yes (Hospitalization)
  Sender: FDA-Public Use
  Company Number: PHHY2009SE07933

PATIENT
  Sex: Male

DRUGS (8)
  1. EXELON [Suspect]
     Dosage: 4.6 MG, QD
     Route: 062
     Dates: start: 20081201
  2. CASODEX [Concomitant]
     Dosage: 50 MG
  3. NASONEX [Concomitant]
     Dosage: 50 MICROGRAM/DOS
     Route: 045
  4. KESTINE [Concomitant]
     Dosage: 10 MG
     Route: 048
  5. FOLACIN [Concomitant]
     Dosage: 5 MG
  6. BEHEPAN [Concomitant]
     Dosage: 1 MG
  7. LECROLYN [Concomitant]
     Dosage: SINGLE-DOSE CONTAINER 20 MG/ML
  8. SUPREFACT - SLOW RELEASE [Concomitant]
     Dosage: 9,45 MG

REACTIONS (4)
  - BRADYKINESIA [None]
  - CHILLS [None]
  - SPEECH DISORDER [None]
  - TREMOR [None]
